FAERS Safety Report 7100094-9 (Version None)
Quarter: 2010Q4

REPORT INFORMATION
  Report Type: 
  Country: None (occurrence: None)
  Receive Date: 20101112
  Receipt Date: 20091123
  Transmission Date: 20110411
  Serious: No
  Sender: FDA-Public Use
  Company Number: A0832343A

PATIENT
  Sex: Male

DRUGS (1)
  1. CARVEDILOL [Suspect]
     Dosage: 50MG TWICE PER DAY
     Route: 048

REACTIONS (1)
  - LEFT VENTRICULAR DYSFUNCTION [None]
